FAERS Safety Report 10706933 (Version 1)
Quarter: 2015Q1

REPORT INFORMATION
  Report Type: Spontaneous
  Country: US (occurrence: None)
  Receive Date: 20150112
  Receipt Date: 20150112
  Transmission Date: 20150721
  Serious: No
  Sender: FDA-Public Use
  Company Number: None

PATIENT

DRUGS (1)
  1. FENTANYL CITRATE. [Suspect]
     Active Substance: FENTANYL CITRATE
     Dosage: 2 MILLILITERS OTHER, VIAL, 50 MCG/ML
     Route: 051
     Dates: start: 201408, end: 20150109

REACTIONS (3)
  - Product quality issue [None]
  - Drug ineffective [None]
  - Product measured potency issue [None]

NARRATIVE: CASE EVENT DATE: 20150109
